FAERS Safety Report 10208305 (Version 1)
Quarter: 2014Q2

REPORT INFORMATION
  Report Type: Spontaneous
  Country: US (occurrence: US)
  Receive Date: 20140530
  Receipt Date: 20140530
  Transmission Date: 20141212
  Serious: Yes (Death)
  Sender: FDA-Public Use
  Company Number: US-NAPPMUNDI-USA-2014-0112820

PATIENT
  Age: 50 Year
  Sex: Female

DRUGS (4)
  1. MORPHINE SULFATE (SIMILAR TO NDA 19-516) [Suspect]
     Indication: ARTHRALGIA
     Dosage: UNK
     Route: 065
  2. OXYCODONE HYDROCHLORIDE (SIMILAR TO NDA 22-272) [Suspect]
     Indication: ARTHRALGIA
     Dosage: UNK
     Route: 065
  3. CARISOPRODOL [Suspect]
     Indication: MUSCLE RELAXANT THERAPY
     Dosage: UNK
     Route: 065
  4. CLONAZEPAM [Suspect]
     Indication: ANXIETY
     Dosage: UNK
     Route: 065

REACTIONS (1)
  - Accidental overdose [Fatal]
